FAERS Safety Report 4511060-1 (Version None)
Quarter: 2004Q4

REPORT INFORMATION
  Report Type: 
  Country: None (occurrence: None)
  Receive Date: 20041018
  Receipt Date: 20040818
  Transmission Date: 20050328
  Serious: No
  Sender: FDA-Public Use
  Company Number: 208561

PATIENT
  Age: 60 Year
  Sex: Female

DRUGS (19)
  1. XOLAIR [Suspect]
     Indication: ASTHMA
     Dosage: 300 MG, Q4W, SUBCUTANEOUS
     Route: 058
     Dates: start: 20040811, end: 20040811
  2. ADVAIR (FLUTICASONE PROPIONATE, SALMETEROL XINAFOATE) [Concomitant]
  3. SINGULAIR [Concomitant]
  4. ALLEGRA [Concomitant]
  5. LIPITOR [Concomitant]
  6. SYNTHROID [Concomitant]
  7. ACTOS [Concomitant]
  8. METFORMIN HCL [Concomitant]
  9. PRILOSEC [Concomitant]
  10. ZOLOFT [Concomitant]
  11. VASOTEC [Concomitant]
  12. NABUMETONE [Concomitant]
  13. MIRAPEX [Concomitant]
  14. ALBUTEROL (ALBUTEROL, ALBUTEROL SULFATE) [Concomitant]
  15. DETROL LA (TOLTERODINE TARTRATE) [Concomitant]
  16. LOMOTIL [Concomitant]
  17. NEURONTIN [Concomitant]
  18. XANAX [Concomitant]
  19. VICODIN [Concomitant]

REACTIONS (2)
  - CHEST DISCOMFORT [None]
  - PAIN [None]
